FAERS Safety Report 7737672-X (Version None)
Quarter: 2011Q3

REPORT INFORMATION
  Report Type: 
  Country: None (occurrence: None)
  Receive Date: 20110908
  Receipt Date: 20110829
  Transmission Date: 20111222
  Serious: Yes (Hospitalization)
  Sender: FDA-Public Use
  Company Number: US-BAYER-201040003NA

PATIENT
  Age: 30 Year
  Sex: Female
  Weight: 67.12 kg

DRUGS (10)
  1. YAZ [Suspect]
     Indication: CONTRACEPTION
  2. YASMIN [Suspect]
     Indication: ACNE
     Dosage: UNK
     Dates: start: 20070801, end: 20080716
  3. YAZ [Suspect]
     Indication: ACNE
     Dosage: UNK
     Route: 048
     Dates: start: 20070801, end: 20080716
  4. YAZ [Suspect]
     Indication: PREMENSTRUAL SYNDROME
  5. CALCIUM CARBONATE [Concomitant]
  6. VITAMIN B COMPLEX CAP [Concomitant]
  7. SPIRONOLACTONE [Concomitant]
     Indication: ACNE
     Dosage: 50-150 MG DAILY
     Route: 048
     Dates: start: 20070101, end: 20100315
  8. YASMIN [Suspect]
     Indication: PREMENSTRUAL SYNDROME
  9. YASMIN [Suspect]
     Indication: CONTRACEPTION
  10. 2% P4 CREAM [Concomitant]
     Dosage: UNK UNK, PRN

REACTIONS (7)
  - DEEP VEIN THROMBOSIS [None]
  - JOINT SWELLING [None]
  - PANIC ATTACK [None]
  - PAIN IN EXTREMITY [None]
  - ARTHRALGIA [None]
  - DEPRESSION [None]
  - OEDEMA PERIPHERAL [None]
